FAERS Safety Report 14295641 (Version 2)
Quarter: 2018Q1

REPORT INFORMATION
  Report Type: Spontaneous
  Country: US (occurrence: US)
  Receive Date: 20171218
  Receipt Date: 20180329
  Transmission Date: 20180509
  Serious: Yes (Hospitalization, Other)
  Sender: FDA-Public Use
  Company Number: US-AEGERION PHARMACEUTICAL, INC-AEGR003494

PATIENT
  Sex: Female

DRUGS (1)
  1. MYALEPT [Suspect]
     Active Substance: METRELEPTIN
     Indication: LIPODYSTROPHY ACQUIRED
     Dosage: 5 MG/ML, QD
     Route: 058

REACTIONS (2)
  - Therapy cessation [Unknown]
  - Back disorder [Unknown]

NARRATIVE: CASE EVENT DATE: 2017
